FAERS Safety Report 22150807 (Version 1)
Quarter: 2023Q1

REPORT INFORMATION
  Report Type: Spontaneous
  Country: US (occurrence: US)
  Receive Date: 20230329
  Receipt Date: 20230329
  Transmission Date: 20230418
  Serious: No
  Sender: FDA-Public Use
  Company Number: US-SA-SAC20230327000780

PATIENT
  Sex: Male

DRUGS (3)
  1. DUPIXENT [Suspect]
     Active Substance: DUPILUMAB
     Indication: Dermatitis atopic
     Dosage: 300 MG QOW
     Route: 058
     Dates: start: 20220408
  2. DUPIXENT [Suspect]
     Active Substance: DUPILUMAB
     Indication: Asthma
  3. TACROLIMUS [Concomitant]
     Active Substance: TACROLIMUS

REACTIONS (7)
  - Visual impairment [Unknown]
  - Insomnia [Unknown]
  - Arthralgia [Unknown]
  - Eye irritation [Unknown]
  - Dermatitis atopic [Unknown]
  - Asthma [Unknown]
  - Drug ineffective [Unknown]
